FAERS Safety Report 18035142 (Version 1)
Quarter: 2020Q3

REPORT INFORMATION
  Report Type: Spontaneous
  Country: US (occurrence: US)
  Receive Date: 20200716
  Receipt Date: 20200716
  Transmission Date: 20201103
  Serious: No
  Sender: FDA-Public Use
  Company Number: None

PATIENT
  Age: 78 Year
  Sex: Male
  Weight: 90.68 kg

DRUGS (22)
  1. LISINOPRIL. [Concomitant]
     Active Substance: LISINOPRIL
  2. LOVENOX [Concomitant]
     Active Substance: ENOXAPARIN SODIUM
  3. ABIRATERONE. [Suspect]
     Active Substance: ABIRATERONE ACETATE
     Indication: PROSTATE CANCER
     Route: 048
     Dates: start: 20200109, end: 20200716
  4. HYDROCHOROTHIAZIDE [Concomitant]
     Active Substance: HYDROCHLOROTHIAZIDE
  5. CLOTRIMAZOLE 1% [Concomitant]
  6. COENZYME Q10 [Concomitant]
     Active Substance: DIETARY SUPPLEMENT\UBIDECARENONE
  7. CHROMIUM PICOLINATE [Concomitant]
     Active Substance: CHROMIUM PICOLINATE
  8. FENTANYL. [Concomitant]
     Active Substance: FENTANYL
  9. LORATADINE. [Concomitant]
     Active Substance: LORATADINE
  10. ALBUTEROL HFA [Concomitant]
     Active Substance: ALBUTEROL SULFATE
  11. BREO ELLIPTA [Concomitant]
     Active Substance: FLUTICASONE FUROATE\VILANTEROL TRIFENATATE
  12. CITRACAL +D3 [Concomitant]
  13. LACTOBACILLUS [Concomitant]
     Active Substance: LACTOBACILLUS ACIDOPHILUS
  14. B COMPLETE [Concomitant]
  15. CALCIUM?MAGNESIUM [Concomitant]
     Active Substance: CALCIUM\MAGNESIUM
  16. OXYCODONE [Concomitant]
     Active Substance: OXYCODONE
  17. ALLEGRA [Concomitant]
     Active Substance: FEXOFENADINE HYDROCHLORIDE
  18. MAG OXIDE [Concomitant]
     Active Substance: MAGNESIUM OXIDE
  19. PREDNISONE. [Concomitant]
     Active Substance: PREDNISONE
  20. PROPYLENE GLYCOL [Concomitant]
     Active Substance: PROPYLENE GLYCOL
  21. SENNA LAXATIVE [Concomitant]
     Active Substance: SENNOSIDES
  22. FERROUS SULFATE. [Concomitant]
     Active Substance: FERROUS SULFATE

REACTIONS (3)
  - Syncope [None]
  - Fall [None]
  - Hypotension [None]

NARRATIVE: CASE EVENT DATE: 20200716
